FAERS Safety Report 17799229 (Version 2)
Quarter: 2022Q4

REPORT INFORMATION
  Report Type: Spontaneous
  Country: DE (occurrence: DE)
  Receive Date: 20200518
  Receipt Date: 20221215
  Transmission Date: 20230113
  Serious: Yes (Hospitalization)
  Sender: FDA-Public Use
  Company Number: DE-ADRED-04520-01

PATIENT
  Age: 86 Year
  Sex: Female

DRUGS (10)
  1. TORSEMIDE [Suspect]
     Active Substance: TORSEMIDE
     Indication: Product used for unknown indication
     Dosage: 20 MG, 2-0-0-0, TABLETS
     Route: 065
  2. XIPAMIDE [Suspect]
     Active Substance: XIPAMIDE
     Indication: Product used for unknown indication
     Dosage: 20 MG, 1-0-0-0, TABLETS
     Route: 065
  3. CINNARIZINE\DIMENHYDRINATE [Suspect]
     Active Substance: CINNARIZINE\DIMENHYDRINATE
     Indication: Product used for unknown indication
     Dosage: 20|40 MG, DISCONTINUED, TABLETS
     Route: 065
  4. RAMIPRIL [Concomitant]
     Active Substance: RAMIPRIL
     Dosage: 2.5 MG, 0.5-0-0-0, TABLETS
     Route: 065
  5. CALCIVIT D [Concomitant]
     Dosage: 600|400 MG/IE, 1-0-1-0, EFFERVESCENT TABLETS
     Route: 065
  6. PROPIVERINE [Concomitant]
     Active Substance: PROPIVERINE
     Dosage: 30 MG, 0-0-1-0, CAPSULE
     Route: 065
  7. BISOPROLOL [Concomitant]
     Active Substance: BISOPROLOL
     Dosage: 5 MG, 1-0.5-0.5-0, TABLETS
     Route: 065
  8. APIXABAN [Concomitant]
     Active Substance: APIXABAN
     Dosage: 2.5 MG, 1-0-1-0, TABLETS
     Route: 065
  9. PANTOPRAZOLE SODIUM [Concomitant]
     Active Substance: PANTOPRAZOLE SODIUM
     Dosage: 40 MG, 1-0-0-0, TABLETS
     Route: 065
  10. SIMVASTATIN [Concomitant]
     Active Substance: SIMVASTATIN
     Dosage: 20 MG/2 DAYS, 0-0-1-0, TABLETS
     Route: 065

REACTIONS (8)
  - Fall [Unknown]
  - General physical health deterioration [Unknown]
  - Tachycardia [Unknown]
  - Arrhythmia [Unknown]
  - Injury [Unknown]
  - Dehydration [Unknown]
  - Dizziness [Unknown]
  - Confusional state [Unknown]
